FAERS Safety Report 21064068 (Version 3)
Quarter: 2022Q3

REPORT INFORMATION
  Report Type: Spontaneous
  Country: GB (occurrence: GB)
  Receive Date: 20220711
  Receipt Date: 20220907
  Transmission Date: 20221027
  Serious: Yes (Hospitalization, Other)
  Sender: FDA-Public Use
  Company Number: GB-MYLANLABS-2022M1051374

PATIENT
  Age: 62 Year
  Sex: Male

DRUGS (1)
  1. CLOZARIL [Suspect]
     Active Substance: CLOZAPINE
     Indication: Schizophrenia
     Dosage: UNK
     Route: 048
     Dates: start: 20040318, end: 202206

REACTIONS (7)
  - Mental impairment [Unknown]
  - Therapy interrupted [Unknown]
  - Hallucination, auditory [Unknown]
  - Delusion [Unknown]
  - Aggression [Unknown]
  - Hostility [Unknown]
  - Schizophrenia [Unknown]
